FAERS Safety Report 5734950-0 (Version None)
Quarter: 2008Q2

REPORT INFORMATION
  Report Type: 
  Country: None (occurrence: None)
  Receive Date: 20080512
  Receipt Date: 20080501
  Transmission Date: 20081010
  Serious: Yes (Disabling)
  Sender: FDA-Public Use
  Company Number: AU-BRISTOL-MYERS SQUIBB COMPANY-13979885

PATIENT
  Age: 55 Year
  Sex: Female

DRUGS (1)
  1. CARBIDOPA + LEVODOPA CR TABS 50/200MG [Suspect]
     Indication: PARKINSON'S DISEASE
     Dosage: DOSE - 50/200MG.CARBIDOPA/LEVODOPA (BATCH NO. H3666, EXPIRY DATE JUNE 2009).
     Route: 048
     Dates: start: 20071006

REACTIONS (3)
  - ACTIVITIES OF DAILY LIVING IMPAIRED [None]
  - DRUG EFFECT DECREASED [None]
  - HEAD DISCOMFORT [None]
